FAERS Safety Report 5221095-1 (Version None)
Quarter: 2007Q1

REPORT INFORMATION
  Report Type: 
  Country: None (occurrence: None)
  Receive Date: 20070124
  Receipt Date: 20070108
  Transmission Date: 20070707
  Serious: Yes (Hospitalization)
  Sender: FDA-Public Use
  Company Number: DSA_29220_2007

PATIENT
  Age: 58 Year
  Sex: Female
  Weight: 68.0396 kg

DRUGS (13)
  1. CARDIZEM CD [Suspect]
     Indication: HYPERTENSION
     Dosage: 120 MG Q DAY PO
     Route: 048
     Dates: start: 20061120
  2. LOVENOX [Concomitant]
  3. AVAPRO [Concomitant]
  4. ASPIRIN [Concomitant]
  5. ZYRTEC [Concomitant]
  6. SINGULAIR [Concomitant]
  7. NEXIUM [Concomitant]
  8. COLACE [Concomitant]
  9. UNITHROID [Concomitant]
  10. LIPITOR [Concomitant]
  11. BENADRYL [Concomitant]
  12. TYLENOL [Concomitant]
  13. SILVER SULFADIAZINE [Concomitant]

REACTIONS (8)
  - ARRHYTHMIA [None]
  - ASTHMA [None]
  - BLOOD PRESSURE FLUCTUATION [None]
  - GASTROOESOPHAGEAL REFLUX DISEASE [None]
  - HEART RATE INCREASED [None]
  - HYPERCHOLESTEROLAEMIA [None]
  - HYPERSENSITIVITY [None]
  - THROMBOSIS [None]
